FAERS Safety Report 10428656 (Version 1)
Quarter: 2014Q3

REPORT INFORMATION
  Report Type: Spontaneous
  Country: CH (occurrence: None)
  Receive Date: 20140829
  Receipt Date: 20140829
  Transmission Date: 20150326
  Serious: Yes (Other)
  Sender: FDA-Public Use
  Company Number: 20140529

PATIENT
  Age: 47 Year
  Sex: Female

DRUGS (1)
  1. FERINJECT [Suspect]
     Active Substance: FERRIC CARBOXYMALTOSE
     Indication: IRON DEFICIENCY ANAEMIA
     Route: 041
     Dates: start: 20140620

REACTIONS (5)
  - Paraesthesia [None]
  - Hypersensitivity [None]
  - Pruritus [None]
  - Musculoskeletal pain [None]
  - Wrong technique in drug usage process [None]

NARRATIVE: CASE EVENT DATE: 20140624
